FAERS Safety Report 5146890-9 (Version None)
Quarter: 2006Q4

REPORT INFORMATION
  Report Type: 
  Country: None (occurrence: None)
  Receive Date: 20061109
  Receipt Date: 20061102
  Transmission Date: 20070319
  Serious: Yes (Other)
  Sender: FDA-Public Use
  Company Number: TW-GLAXOSMITHKLINE-B0445808A

PATIENT
  Age: 35 Year
  Sex: Female

DRUGS (1)
  1. ZEFFIX [Suspect]
     Indication: HEPATITIS B
     Dates: start: 20060511

REACTIONS (2)
  - ARTHRALGIA [None]
  - JOINT SWELLING [None]
